FAERS Safety Report 8880134 (Version 1)
Quarter: 2012Q4

REPORT INFORMATION
  Report Type: 
  Country: US (occurrence: US)
  Receive Date: 20121031
  Receipt Date: 20121031
  Transmission Date: 20130627
  Serious: Yes (Hospitalization)
  Sender: FDA-Public Use
  Company Number: US-009507513-1210USA011986

PATIENT
  Age: 74 Year
  Sex: Female

DRUGS (5)
  1. SIMVASTATIN [Suspect]
     Dosage: 20 mg, UNK
     Route: 048
  2. PRILOSEC [Concomitant]
  3. METOPROLOL [Concomitant]
  4. HYDROCHLOROTHIAZIDE (+) LOSARTAN POTASSIUM [Concomitant]
  5. ASPIRIN [Concomitant]

REACTIONS (1)
  - Diarrhoea [Recovered/Resolved]
